FAERS Safety Report 19675714 (Version 1)
Quarter: 2021Q3

REPORT INFORMATION
  Report Type: Spontaneous
  Country: GB (occurrence: GB)
  Receive Date: 20210809
  Receipt Date: 20210809
  Transmission Date: 20211014
  Serious: Yes (Other)
  Sender: FDA-Public Use
  Company Number: GB-ALIMERA SCIENCES INC.-GB-A16013-21-000167

PATIENT

DRUGS (1)
  1. ILUVIEN [Suspect]
     Active Substance: FLUOCINOLONE ACETONIDE
     Indication: DIABETIC RETINAL OEDEMA
     Dosage: 0.25 MICROGRAM, QD ? UNKNOWN EYE
     Route: 031

REACTIONS (2)
  - Device dislocation [Recovered/Resolved]
  - Eye operation [Recovered/Resolved]
